FAERS Safety Report 4599247-3 (Version None)
Quarter: 2005Q1

REPORT INFORMATION
  Report Type: 
  Country: None (occurrence: None)
  Receive Date: 20050302
  Receipt Date: 20050302
  Transmission Date: 20050727
  Serious: Yes (Other)
  Sender: FDA-Public Use
  Company Number: None

PATIENT
  Age: 73 Year
  Sex: Male
  Weight: 111.1313 kg

DRUGS (2)
  1. OMEPRAZOLE [Suspect]
     Indication: COUGH
     Dosage: 20MG EVERY DAY BY MOUTH
     Dates: start: 19980101
  2. OMEPRAZOLE [Suspect]
     Indication: GASTROOESOPHAGEAL REFLUX DISEASE
     Dosage: 20MG EVERY DAY BY MOUTH
     Dates: start: 19980101

REACTIONS (4)
  - COUGH [None]
  - HEADACHE [None]
  - NAUSEA [None]
  - PHARMACEUTICAL PRODUCT COMPLAINT [None]
